FAERS Safety Report 8956182 (Version 1)
Quarter: 2012Q4

REPORT INFORMATION
  Report Type: 
  Country: US (occurrence: US)
  Receive Date: 20121210
  Receipt Date: 20121210
  Transmission Date: 20130627
  Serious: Yes (Hospitalization)
  Sender: FDA-Public Use
  Company Number: US-JNJFOC-2004057371

PATIENT
  Age: 30 Year
  Sex: Male
  Weight: 88.5 kg

DRUGS (2)
  1. MOTRIN [Suspect]
     Route: 048
  2. MOTRIN [Suspect]
     Indication: BACK PAIN
     Dosage: Daily Dose Text: 2 TABLETS Q8H
     Route: 048
     Dates: start: 19840522, end: 19840524

REACTIONS (1)
  - Ventricular tachycardia [Recovered/Resolved]
